FAERS Safety Report 15860654 (Version 1)
Quarter: 2019Q1

REPORT INFORMATION
  Report Type: Spontaneous
  Country: US (occurrence: US)
  Receive Date: 20190124
  Receipt Date: 20190124
  Transmission Date: 20190417
  Serious: No
  Sender: FDA-Public Use
  Company Number: US-NATCO PHARMA LIMITED-2061674

PATIENT
  Age: 47 Year
  Sex: Female
  Weight: 88.18 kg

DRUGS (6)
  1. AMLODIPINE [Concomitant]
     Active Substance: AMLODIPINE BESYLATE
  2. ASPIRIN. [Concomitant]
     Active Substance: ASPIRIN
  3. LETROZOLE. [Suspect]
     Active Substance: LETROZOLE
     Indication: UTERINE LEIOMYOMA
     Route: 048
     Dates: start: 20170101, end: 20180216
  4. ATORVASTATIN CALCIUM. [Concomitant]
     Active Substance: ATORVASTATIN CALCIUM
  5. NORETHINDRONE. [Concomitant]
     Active Substance: NORETHINDRONE
  6. CHLORTHALIDONE. [Concomitant]
     Active Substance: CHLORTHALIDONE

REACTIONS (1)
  - Alopecia [Recovered/Resolved]

NARRATIVE: CASE EVENT DATE: 20180201
